FAERS Safety Report 9044643 (Version 2)
Quarter: 2013Q1

REPORT INFORMATION
  Report Type: Spontaneous
  Country: US (occurrence: US)
  Receive Date: 20130130
  Receipt Date: 20130315
  Transmission Date: 20140127
  Serious: No
  Sender: FDA-Public Use
  Company Number: US-ASTRAZENECA-2013SE05868

PATIENT
  Age: 52 Year
  Sex: Male
  Weight: 95.3 kg

DRUGS (1)
  1. SYMBICORT PMDI [Suspect]
     Indication: CHRONIC OBSTRUCTIVE PULMONARY DISEASE
     Dosage: 16/4.5 , 2 PUFFS TWO TIMES A DAY
     Route: 055

REACTIONS (3)
  - Wheezing [Unknown]
  - Sleep disorder [Unknown]
  - Drug dose omission [Unknown]
